FAERS Safety Report 4976284-8 (Version None)
Quarter: 2006Q2

REPORT INFORMATION
  Report Type: 
  Country: None (occurrence: None)
  Receive Date: 20060419
  Receipt Date: 20060405
  Transmission Date: 20061013
  Serious: Yes (Life-Threatening, Hospitalization)
  Sender: FDA-Public Use
  Company Number: NL-ROCHE-443686

PATIENT
  Age: 66 Year
  Sex: Male

DRUGS (5)
  1. CAPECITABINE [Suspect]
     Dosage: DAYS 1-14, AS PER PROTOCOL REPORTED DOSE = 2000 X 2
     Route: 048
     Dates: start: 20060209
  2. AVASTIN [Suspect]
     Dosage: DAY 1, AS PER PROTOCOL REPORTED DOSE = 530
     Route: 042
     Dates: start: 20060209
  3. OXALIPLATIN [Suspect]
     Dosage: DAY 1, AS PER PROTOCOL REPORTED DOSE = 250
     Route: 042
     Dates: start: 20060209
  4. ERBITUX [Suspect]
     Dosage: ON DAY 1 OF CYCLE 1 ONLY, AS PER PROTOCOL
     Route: 042
     Dates: start: 20060209
  5. ERBITUX [Suspect]
     Dosage: FROM CYCLE 2, AS PER PROTOCOL REPORTED DOSE = 480
     Route: 042

REACTIONS (2)
  - DIARRHOEA [None]
  - ILEUS [None]
